FAERS Safety Report 23942506 (Version 1)
Quarter: 2024Q2

REPORT INFORMATION
  Report Type: Spontaneous
  Country: US (occurrence: US)
  Receive Date: 20240605
  Receipt Date: 20240605
  Transmission Date: 20240716
  Serious: Yes (Other)
  Sender: FDA-Public Use
  Company Number: US-JNJFOC-20240582134

PATIENT
  Sex: Female

DRUGS (1)
  1. SIMPONI ARIA [Suspect]
     Active Substance: GOLIMUMAB
     Indication: Ankylosing spondylitis
     Route: 041
     Dates: start: 202405

REACTIONS (5)
  - Eye infection fungal [Unknown]
  - Fungal infection [Unknown]
  - Arthralgia [Unknown]
  - Adverse event [Unknown]
  - Inflammation [Unknown]

NARRATIVE: CASE EVENT DATE: 20240529
